FAERS Safety Report 9983808 (Version 1)
Quarter: 2014Q1

REPORT INFORMATION
  Report Type: Spontaneous
  Country: FR (occurrence: FR)
  Receive Date: 20140307
  Receipt Date: 20140307
  Transmission Date: 20141002
  Serious: Yes (Disabling)
  Sender: FDA-Public Use
  Company Number: FR-GLAXOSMITHKLINE-B0972849A

PATIENT
  Age: 61 Year
  Sex: Female

DRUGS (3)
  1. TOCTINO [Suspect]
     Indication: PALMOPLANTAR KERATODERMA
     Route: 048
     Dates: start: 200911, end: 201103
  2. SORIATANE [Suspect]
     Indication: PALMOPLANTAR KERATODERMA
     Route: 048
     Dates: start: 201107, end: 201209
  3. BOTULINUM TOXIN [Concomitant]
     Indication: HYPERHIDROSIS
     Route: 065
     Dates: start: 201301

REACTIONS (3)
  - Chondrolysis [Not Recovered/Not Resolved]
  - Arthralgia [Not Recovered/Not Resolved]
  - Arthralgia [None]
